FAERS Safety Report 23037547 (Version 5)
Quarter: 2024Q1

REPORT INFORMATION
  Report Type: Report from Study
  Country: GB (occurrence: GB)
  Receive Date: 20231006
  Receipt Date: 20240129
  Transmission Date: 20240410
  Serious: Yes (Death, Hospitalization)
  Sender: FDA-Public Use
  Company Number: GB-UCBSA-2022009727

PATIENT
  Age: 82 Year
  Sex: Male

DRUGS (3)
  1. CERTOLIZUMAB PEGOL [Suspect]
     Active Substance: CERTOLIZUMAB PEGOL
     Indication: Rheumatoid arthritis
     Dosage: 200 MILLIGRAM, EV 2 WEEKS(QOW)
     Route: 058
     Dates: start: 20220215
  2. COBAMAMIDE [Concomitant]
     Active Substance: COBAMAMIDE
     Indication: Product used for unknown indication
     Dosage: UNK, EV 2 MONTHS
  3. METHOTREXATE [Concomitant]
     Active Substance: METHOTREXATE
     Indication: Product used for unknown indication
     Dosage: UNK

REACTIONS (19)
  - Death [Fatal]
  - Hospitalisation [Unknown]
  - COVID-19 [Recovered/Resolved]
  - Fall [Recovered/Resolved]
  - Dyspnoea [Recovered/Resolved]
  - COVID-19 pneumonia [Recovered/Resolved]
  - Infection [Unknown]
  - Enema administration [Not Recovered/Not Resolved]
  - Skin ulcer [Unknown]
  - Anaemia [Unknown]
  - Skin laceration [Unknown]
  - Paronychia [Unknown]
  - Arthralgia [Unknown]
  - Gingival ulceration [Recovered/Resolved]
  - Gingivitis [Recovered/Resolved]
  - Pain [Unknown]
  - Ulcer [Unknown]
  - Inappropriate schedule of product administration [Unknown]
  - Intentional dose omission [Unknown]

NARRATIVE: CASE EVENT DATE: 20220201
